FAERS Safety Report 5536330-X (Version None)
Quarter: 2007Q4

REPORT INFORMATION
  Report Type: 
  Country: None (occurrence: None)
  Receive Date: 20071206
  Receipt Date: 20071127
  Transmission Date: 20080405
  Serious: Yes (Other)
  Sender: FDA-Public Use
  Company Number: CN-PFIZER INC-2007096258

PATIENT
  Age: 70 Year
  Sex: Female

DRUGS (5)
  1. VFEND [Suspect]
     Indication: ASPERGILLOSIS
     Route: 042
  2. ALL OTHER THERAPEUTIC PRODUCTS [Concomitant]
  3. MUCOSOLVAN [Concomitant]
  4. GLUTATHIONE [Concomitant]
  5. GRANISETRON [Concomitant]

REACTIONS (3)
  - GAZE PALSY [None]
  - LOSS OF CONSCIOUSNESS [None]
  - TRISMUS [None]
